FAERS Safety Report 10224760 (Version 6)
Quarter: 2015Q2

REPORT INFORMATION
  Report Type: Spontaneous
  Country: US (occurrence: US)
  Receive Date: 20140609
  Receipt Date: 20150626
  Transmission Date: 20150821
  Serious: Yes (Hospitalization, Other)
  Sender: FDA-Public Use
  Company Number: US-GLAXOSMITHKLINE-A1076300A

PATIENT
  Sex: Female
  Weight: 63.95 kg

DRUGS (2)
  1. BENLYSTA [Suspect]
     Active Substance: BELIMUMAB
     Indication: SYSTEMIC LUPUS ERYTHEMATOSUS
     Dosage: 120 MG EVERY 28 DAYS
     Route: 042
     Dates: start: 20110817, end: 20130514
  2. BENLYSTA [Suspect]
     Active Substance: BELIMUMAB
     Dosage: 120 MG EVERY 28 DAYS
     Route: 042
     Dates: end: 20140602

REACTIONS (6)
  - Pseudomonas infection [Unknown]
  - Granuloma [Not Recovered/Not Resolved]
  - Lung infection [Unknown]
  - Staphylococcal infection [Unknown]
  - Hospitalisation [Unknown]
  - Lung disorder [Unknown]
